FAERS Safety Report 20491639 (Version 2)
Quarter: 2022Q2

REPORT INFORMATION
  Report Type: Other
  Country: US (occurrence: None)
  Receive Date: 20220218
  Receipt Date: 20220407
  Transmission Date: 20220720
  Serious: Yes (Hospitalization, Other)
  Sender: FDA-Public Use
  Company Number: US-ROCHE-3020617

PATIENT
  Sex: Male

DRUGS (1)
  1. OCREVUS [Suspect]
     Active Substance: OCRELIZUMAB
     Indication: Secondary progressive multiple sclerosis
     Dosage: ONGOING: YES
     Route: 065
     Dates: start: 20200131

REACTIONS (3)
  - COVID-19 [Unknown]
  - Pneumonia [Unknown]
  - Multiple sclerosis relapse [Recovering/Resolving]
